FAERS Safety Report 23635468 (Version 2)
Quarter: 2024Q1

REPORT INFORMATION
  Report Type: Report from Study
  Country: DE (occurrence: DE)
  Receive Date: 20240315
  Receipt Date: 20240321
  Transmission Date: 20240410
  Serious: Yes (Death, Hospitalization, Other)
  Sender: FDA-Public Use
  Company Number: DE-ABBVIE-5680152

PATIENT
  Age: 77 Year
  Sex: Male

DRUGS (16)
  1. CARBIDOPA\LEVODOPA [Suspect]
     Active Substance: CARBIDOPA\LEVODOPA
     Indication: Parkinson^s disease
     Dosage: CRD: 4.8 ML/H, CRN: 1.8 ML/H
     Route: 050
     Dates: start: 20230228
  2. CARBIDOPA\LEVODOPA [Suspect]
     Active Substance: CARBIDOPA\LEVODOPA
  3. CARVEDILOL [Concomitant]
     Active Substance: CARVEDILOL
     Indication: Atrial fibrillation
     Dosage: FREQUENCY TEXT: HALF A DOSE TWICE A DAY
  4. BENSERAZIDE HYDROCHLORIDE\LEVODOPA [Concomitant]
     Active Substance: BENSERAZIDE HYDROCHLORIDE\LEVODOPA
     Indication: Product used for unknown indication
     Dosage: TIME INTERVAL: 0.125 DAYS: 100/25 MG
  5. BENSERAZIDE HYDROCHLORIDE\LEVODOPA [Concomitant]
     Active Substance: BENSERAZIDE HYDROCHLORIDE\LEVODOPA
     Indication: Product used for unknown indication
     Dosage: 100/25 MG
  6. SERTRALIN HEUMANN [Concomitant]
     Indication: Product used for unknown indication
  7. PRUCALOPRIDE SUCCINATE [Concomitant]
     Active Substance: PRUCALOPRIDE SUCCINATE
     Indication: Product used for unknown indication
  8. METAMIZOLE SODIUM [Concomitant]
     Active Substance: METAMIZOLE SODIUM
     Indication: Pain
     Dosage: FREQUENCY TEXT: UP TO 3 X 30 DROPS
  9. FOLIC ACID [Concomitant]
     Active Substance: FOLIC ACID
     Indication: Product used for unknown indication
  10. QUETIAPIN HEUMANN [Concomitant]
     Indication: Product used for unknown indication
     Dosage: FREQUENCY TEXT: ONE AND A HALF DOSE A DAY
  11. QUETIAPIN HEUMANN [Concomitant]
     Indication: Product used for unknown indication
     Dosage: FREQUENCY TEXT: ONE AND A HALF DOSE A DAY
  12. BENSERAZIDE HYDROCHLORIDE\LEVODOPA [Concomitant]
     Active Substance: BENSERAZIDE HYDROCHLORIDE\LEVODOPA
     Indication: Product used for unknown indication
     Dosage: 100/25 MG?MADOPAR RET.
  13. ELIQUIS [Concomitant]
     Active Substance: APIXABAN
     Indication: Atrial fibrillation
  14. PROPOFOL [Concomitant]
     Active Substance: PROPOFOL
     Indication: Endoscopy
     Dates: start: 20240212, end: 20240212
  15. DIGITOXIN [Concomitant]
     Active Substance: DIGITOXIN
     Indication: Atrial tachycardia
     Dosage: FREQUENCY TEXT: 1/2 ON 4 AND 1 DOSE 3 DAYS A WEEK
  16. LACOSAMIDE [Concomitant]
     Active Substance: LACOSAMIDE
     Indication: Product used for unknown indication

REACTIONS (23)
  - Colitis [Fatal]
  - Folate deficiency [Unknown]
  - Epilepsy [Unknown]
  - Type 2 diabetes mellitus [Unknown]
  - Craniocerebral injury [Unknown]
  - Dyslipidaemia [Unknown]
  - Atrial fibrillation [Unknown]
  - Device dislocation [Recovered/Resolved]
  - Fall [Unknown]
  - Carotid artery stenosis [Unknown]
  - Dysphagia [Fatal]
  - COVID-19 [Unknown]
  - Anaemia [Unknown]
  - Subdural haematoma [Unknown]
  - Stoma site infection [Fatal]
  - Benign prostatic hyperplasia [Unknown]
  - Hyperlipidaemia [Unknown]
  - Epilepsy [Unknown]
  - Lung cancer metastatic [Unknown]
  - Intentional medical device removal by patient [Unknown]
  - Transient ischaemic attack [Unknown]
  - Palliative care [Fatal]
  - Delirium [Unknown]

NARRATIVE: CASE EVENT DATE: 20230605
